FAERS Safety Report 6596662-3 (Version None)
Quarter: 2010Q1

REPORT INFORMATION
  Report Type: 
  Country: None (occurrence: None)
  Receive Date: 20100223
  Receipt Date: 20100122
  Transmission Date: 20100710
  Serious: Yes (Disabling, Other)
  Sender: FDA-Public Use
  Company Number: US-BAYER-200914496NA

PATIENT
  Age: 51 Year
  Sex: Male
  Weight: 108 kg

DRUGS (19)
  1. MAGNEVIST [Suspect]
     Indication: NUCLEAR MAGNETIC RESONANCE IMAGING BRAIN
     Route: 042
     Dates: start: 20040916, end: 20040916
  2. MAGNEVIST [Suspect]
     Dates: start: 20050223, end: 20050223
  3. MAGNEVIST [Suspect]
     Dates: start: 20060505, end: 20060505
  4. MAGNEVIST [Suspect]
     Dates: start: 20070223, end: 20070223
  5. MAGNEVIST [Suspect]
     Dates: start: 20070123, end: 20070123
  6. MAGNEVIST [Suspect]
     Dates: start: 20061215, end: 20061215
  7. OMNISCAN [Suspect]
     Indication: NUCLEAR MAGNETIC RESONANCE IMAGING
     Dates: start: 20060509
  8. OMNISCAN [Suspect]
     Dates: start: 20040824
  9. UNKNOWN GADOLINIUM CONTRAST [Suspect]
     Indication: ANGIOGRAM
     Dates: start: 20070224, end: 20070224
  10. CELLCEPT [Concomitant]
     Indication: TRANSPLANT REJECTION
  11. PROGRAF [Concomitant]
     Indication: TRANSPLANT REJECTION
  12. INSULIN [Concomitant]
     Dates: start: 19980101
  13. NEXIUM [Concomitant]
  14. PHOSLO [Concomitant]
     Dosage: 2000 MG TID
  15. ARANESP [Concomitant]
  16. FERRLECIT [Concomitant]
     Dosage: 62.5 MG PER WEEK
     Route: 042
  17. EPOGEN [Concomitant]
     Dosage: 13000 UNITS
  18. SEVELAMER [Concomitant]
     Dosage: 1600 MG TID
  19. TRENTAL [Concomitant]
     Dosage: 400 MG BID
     Dates: start: 20070301

REACTIONS (25)
  - ANHEDONIA [None]
  - ANXIETY [None]
  - ARTHRALGIA [None]
  - ASTHENIA [None]
  - DRY SKIN [None]
  - EMOTIONAL DISTRESS [None]
  - FIBROSIS [None]
  - GAIT DISTURBANCE [None]
  - GENERAL PHYSICAL HEALTH DETERIORATION [None]
  - JOINT CONTRACTURE [None]
  - JOINT RANGE OF MOTION DECREASED [None]
  - JOINT STIFFNESS [None]
  - MOBILITY DECREASED [None]
  - MUSCULAR WEAKNESS [None]
  - MUSCULOSKELETAL STIFFNESS [None]
  - NEPHROGENIC SYSTEMIC FIBROSIS [None]
  - OEDEMA PERIPHERAL [None]
  - PAIN [None]
  - SCAR [None]
  - SKIN ATROPHY [None]
  - SKIN DISCOLOURATION [None]
  - SKIN FIBROSIS [None]
  - SKIN HYPERTROPHY [None]
  - SKIN INDURATION [None]
  - SKIN TIGHTNESS [None]
